FAERS Safety Report 19120542 (Version 1)
Quarter: 2021Q2

REPORT INFORMATION
  Report Type: Spontaneous
  Country: US (occurrence: US)
  Receive Date: 20210410
  Receipt Date: 20210410
  Transmission Date: 20210717
  Serious: No
  Sender: FDA-Public Use
  Company Number: None

PATIENT

DRUGS (1)
  1. SPRYCEL [Suspect]
     Active Substance: DASATINIB
     Route: 048
     Dates: start: 201604

REACTIONS (2)
  - Ulcer [None]
  - Endoscopy [None]

NARRATIVE: CASE EVENT DATE: 20210408
